FAERS Safety Report 4387741-X (Version None)
Quarter: 2004Q2

REPORT INFORMATION
  Report Type: 
  Country: None (occurrence: None)
  Receive Date: 20040625
  Receipt Date: 20040616
  Transmission Date: 20050107
  Serious: Yes (Hospitalization)
  Sender: FDA-Public Use
  Company Number: 2004PK01049

PATIENT
  Age: 67 Year
  Sex: Male

DRUGS (1)
  1. SCANDICAIN [Suspect]
     Indication: BACK PAIN
     Route: 023

REACTIONS (6)
  - AMNESIA [None]
  - DECREASED ACTIVITY [None]
  - ELECTROENCEPHALOGRAM ABNORMAL [None]
  - HEADACHE [None]
  - NAUSEA [None]
  - SOMNOLENCE [None]
